FAERS Safety Report 19467231 (Version 1)
Quarter: 2021Q2

REPORT INFORMATION
  Report Type: Spontaneous
  Country: US (occurrence: US)
  Receive Date: 20210625
  Receipt Date: 20210625
  Transmission Date: 20210717
  Serious: No
  Sender: FDA-Public Use
  Company Number: None

PATIENT
  Age: 16 Year
  Sex: Male
  Weight: 103.5 kg

DRUGS (1)
  1. PROACTIV [Suspect]
     Active Substance: BENZOYL PEROXIDE
     Indication: ACNE
     Route: 061
     Dates: start: 20210624, end: 20210624

REACTIONS (5)
  - Erythema [None]
  - Swelling face [None]
  - Eye swelling [None]
  - Skin weeping [None]
  - Drug hypersensitivity [None]

NARRATIVE: CASE EVENT DATE: 20210625
